FAERS Safety Report 12874392 (Version 2)
Quarter: 2016Q4

REPORT INFORMATION
  Report Type: Report from Study
  Country: None (occurrence: US)
  Receive Date: 20161021
  Receipt Date: 20161231
  Transmission Date: 20170207
  Serious: Yes (Hospitalization, Other)
  Sender: FDA-Public Use
  Company Number: US-ABBVIE-16K-163-1757730-00

PATIENT
  Age: 59 Year
  Sex: Male
  Weight: 59.47 kg

DRUGS (9)
  1. FOLIC ACID. [Concomitant]
     Active Substance: FOLIC ACID
     Indication: VITAMIN SUPPLEMENTATION
  2. THIAMINE. [Concomitant]
     Active Substance: THIAMINE
     Indication: VITAMIN SUPPLEMENTATION
  3. SIMVASTATIN. [Concomitant]
     Active Substance: SIMVASTATIN
     Indication: BLOOD CHOLESTEROL ABNORMAL
  4. MELATONIN [Concomitant]
     Active Substance: MELATONIN
     Indication: SLEEP DISORDER
  5. QUETIAPINE. [Concomitant]
     Active Substance: QUETIAPINE
     Indication: SEIZURE
  6. OMEPRAZOLE. [Concomitant]
     Active Substance: OMEPRAZOLE
     Indication: GASTROOESOPHAGEAL REFLUX DISEASE
  7. HUMIRA [Suspect]
     Active Substance: ADALIMUMAB
     Indication: COLITIS ULCERATIVE
     Route: 058
     Dates: start: 20160808, end: 20160808
  8. HUMIRA [Suspect]
     Active Substance: ADALIMUMAB
     Route: 058
     Dates: start: 20160824, end: 20160824
  9. SIMVASTATIN. [Concomitant]
     Active Substance: SIMVASTATIN
     Indication: CEREBROVASCULAR ACCIDENT

REACTIONS (16)
  - Abdominal pain [Recovered/Resolved]
  - Confusional state [Not Recovered/Not Resolved]
  - Seizure [Recovering/Resolving]
  - Abdominal infection [Recovered/Resolved]
  - Abnormal behaviour [Recovered/Resolved]
  - Weight decreased [Recovering/Resolving]
  - Neglect of personal appearance [Not Recovered/Not Resolved]
  - Memory impairment [Not Recovered/Not Resolved]
  - Arthropod sting [Recovered/Resolved]
  - Decreased appetite [Recovering/Resolving]
  - Drug hypersensitivity [Unknown]
  - Mental status changes [Recovering/Resolving]
  - Repetitive speech [Recovered/Resolved]
  - Haematochezia [Recovered/Resolved]
  - Cerebrovascular accident [Recovering/Resolving]
  - Rash erythematous [Recovered/Resolved]

NARRATIVE: CASE EVENT DATE: 201608
